FAERS Safety Report 7417964-4 (Version None)
Quarter: 2011Q2

REPORT INFORMATION
  Report Type: 
  Country: None (occurrence: None)
  Receive Date: 20110415
  Receipt Date: 20110412
  Transmission Date: 20111010
  Serious: Yes (Other)
  Sender: FDA-Public Use
  Company Number: US-ROXANE LABORATORIES, INC.-2011-RO-00501RO

PATIENT
  Age: 54 Year
  Sex: Female

DRUGS (6)
  1. QUETIAPINE [Suspect]
     Dosage: 800 MG
  2. SELEGILINE [Suspect]
     Indication: PARKINSON'S DISEASE
     Dosage: 5 MG
  3. CLONAZEPAM [Suspect]
     Dosage: 1 MG
  4. ZOLPIDEM [Suspect]
     Dosage: 10 MG
  5. SERTRALINE [Suspect]
     Dosage: 250 MG
  6. CARBIDOPA AND LEVODOPA [Suspect]
     Indication: PARKINSON'S DISEASE

REACTIONS (2)
  - SCHIZOPHRENIA [None]
  - PARKINSON'S DISEASE [None]
